FAERS Safety Report 8328870-5 (Version None)
Quarter: 2012Q2

REPORT INFORMATION
  Report Type: 
  Country: None (occurrence: None)
  Receive Date: 20120430
  Receipt Date: 20120413
  Transmission Date: 20120825
  Serious: Yes (Hospitalization)
  Sender: FDA-Public Use
  Company Number: ADR-2012321040

PATIENT
  Age: 81 Year
  Sex: Female
  Weight: 65.7716 kg

DRUGS (4)
  1. AZOR/AMLODIPINE [Concomitant]
  2. SYNTHROID [Concomitant]
  3. GABAPENTIN [Suspect]
     Indication: NEUROPATHY PERIPHERAL
     Dosage: 200 MG, TID + ORAL
     Route: 048
  4. GABAPENTIN [Suspect]
     Indication: FIBROMYALGIA
     Dosage: 200 MG, TID + ORAL
     Route: 048

REACTIONS (3)
  - DIZZINESS [None]
  - BLOOD SODIUM DECREASED [None]
  - PNEUMONIA [None]
